FAERS Safety Report 17685584 (Version 1)
Quarter: 2020Q2

REPORT INFORMATION
  Report Type: Spontaneous
  Country: US (occurrence: US)
  Receive Date: 20200417
  Receipt Date: 20200417
  Transmission Date: 20200714
  Serious: Yes (Hospitalization)
  Sender: FDA-Public Use
  Company Number: None

PATIENT
  Age: 95 Year
  Sex: Female
  Weight: 54.88 kg

DRUGS (1)
  1. CIPROFLOXACIN (CIPROFLOXACIN HCL 500MG TAB) [Suspect]
     Active Substance: CIPROFLOXACIN HYDROCHLORIDE
     Indication: PROPHYLAXIS URINARY TRACT INFECTION
     Dates: start: 20190625, end: 20190628

REACTIONS (3)
  - Hallucination [None]
  - Gait disturbance [None]
  - Dysstasia [None]

NARRATIVE: CASE EVENT DATE: 20190628
